FAERS Safety Report 9498183 (Version 1)
Quarter: 2013Q3

REPORT INFORMATION
  Report Type: Spontaneous
  Country: US (occurrence: US)
  Receive Date: 20130904
  Receipt Date: 20130904
  Transmission Date: 20140515
  Serious: No
  Sender: FDA-Public Use
  Company Number: US-AMGEN-USASP2013059128

PATIENT
  Age: 55 Year
  Sex: Female

DRUGS (1)
  1. ENBREL [Suspect]
     Indication: ARTHRITIS
     Dosage: 50 MG, QWK
     Route: 065
     Dates: start: 201306

REACTIONS (3)
  - Wrong technique in drug usage process [Recovered/Resolved]
  - Injection site pain [Not Recovered/Not Resolved]
  - Injection site reaction [Recovered/Resolved]
